FAERS Safety Report 21296541 (Version 2)
Quarter: 2022Q3

REPORT INFORMATION
  Report Type: Spontaneous
  Country: US (occurrence: US)
  Receive Date: 20220906
  Receipt Date: 20220921
  Transmission Date: 20221027
  Serious: No
  Sender: FDA-Public Use
  Company Number: US-BRISTOL-MYERS SQUIBB COMPANY-2022-101308

PATIENT
  Age: 75 Year
  Sex: Female
  Weight: 58.51 kg

DRUGS (1)
  1. REVLIMID [Suspect]
     Active Substance: LENALIDOMIDE
     Indication: Plasma cell myeloma
     Dosage: QD FOR 21/28 DAYS
     Route: 048
     Dates: start: 20220902

REACTIONS (6)
  - Constipation [Unknown]
  - Pyrexia [Not Recovered/Not Resolved]
  - Skin discolouration [Unknown]
  - Hyperhidrosis [Unknown]
  - Chills [Unknown]
  - Pruritus [Not Recovered/Not Resolved]

NARRATIVE: CASE EVENT DATE: 20220902
